FAERS Safety Report 19138328 (Version 1)
Quarter: 2021Q2

REPORT INFORMATION
  Report Type: Spontaneous
  Country: CN (occurrence: CN)
  Receive Date: 20210414
  Receipt Date: 20210414
  Transmission Date: 20210717
  Serious: Yes (Life-Threatening, Other)
  Sender: FDA-Public Use
  Company Number: CN-JIANGSU HENGRUI MEDICINE CO., LTD.-2109355

PATIENT
  Age: 51 Year
  Sex: Female
  Weight: 50 kg

DRUGS (7)
  1. PENTAZOCINE [Suspect]
     Active Substance: PENTAZOCINE
     Route: 050
     Dates: start: 20210317, end: 20210317
  2. DEXAMETHASONE SODIUM PHOSPHATE. [Suspect]
     Active Substance: DEXAMETHASONE SODIUM PHOSPHATE
     Route: 050
     Dates: start: 20210317, end: 20210317
  3. RAMOSETRON HYDROCHLORIDE [Suspect]
     Active Substance: RAMOSETRON HYDROCHLORIDE
     Route: 050
     Dates: start: 20210317, end: 20210317
  4. CISATRACURIUM BESYLATE INJECTION USP, 20 MG/10 ML (2 MG/ML) MULTI?DOSE [Suspect]
     Active Substance: CISATRACURIUM BESYLATE
     Indication: INDUCTION OF ANAESTHESIA
     Route: 050
     Dates: start: 20210317, end: 20210317
  5. REMIMAZOLAM TOSILATE FOR INJECTION [Suspect]
     Active Substance: REMIMAZOLAM TOSYLATE
     Route: 050
     Dates: start: 20210317, end: 20210317
  6. SUFENTANIL CITRATE. [Suspect]
     Active Substance: SUFENTANIL CITRATE
     Route: 050
     Dates: start: 20210317, end: 20210317
  7. MIDAZOLAM. [Suspect]
     Active Substance: MIDAZOLAM
     Route: 050
     Dates: start: 20210317, end: 20210317

REACTIONS (1)
  - Shock [Recovered/Resolved]

NARRATIVE: CASE EVENT DATE: 20210317
